FAERS Safety Report 4641475-2 (Version None)
Quarter: 2005Q2

REPORT INFORMATION
  Report Type: 
  Country: None (occurrence: None)
  Receive Date: 20050421
  Receipt Date: 20050314
  Transmission Date: 20051028
  Serious: Yes (Hospitalization, Disabling)
  Sender: FDA-Public Use
  Company Number: US-GLAXOSMITHKLINE-A0549510A

PATIENT
  Age: 33 Year
  Sex: Male
  Weight: 80 kg

DRUGS (2)
  1. GW873140 [Concomitant]
     Indication: HIV INFECTION
     Dosage: 800MG TWICE PER DAY
     Route: 048
     Dates: start: 20050221, end: 20050314
  2. COMBIVIR [Suspect]
     Indication: HIV INFECTION
     Dosage: 1TAB TWICE PER DAY
     Route: 048
     Dates: start: 20050221, end: 20050314

REACTIONS (7)
  - ANAEMIA [None]
  - DYSPNOEA [None]
  - FATIGUE [None]
  - HAEMOGLOBIN DECREASED [None]
  - LEUKOPENIA [None]
  - PNEUMONIA [None]
  - TACHYCARDIA [None]
